FAERS Safety Report 6976019-3 (Version None)
Quarter: 2010Q3

REPORT INFORMATION
  Report Type: 
  Country: None (occurrence: None)
  Receive Date: 20100910
  Receipt Date: 20100813
  Transmission Date: 20110219
  Serious: No
  Sender: FDA-Public Use
  Company Number: US-BAYER-201029599NA

PATIENT
  Age: 78 Year
  Sex: Female
  Weight: 61 kg

DRUGS (4)
  1. NEXAVAR [Suspect]
     Indication: HEPATIC NEOPLASM MALIGNANT
     Dosage: TOTAL DAILY DOSE: 800 MG  UNIT DOSE: 200 MG
     Route: 048
     Dates: start: 20100501, end: 20100601
  2. NEXAVAR [Suspect]
     Dosage: AS USED: 400/200 MG  UNIT DOSE: 200 MG
     Route: 048
     Dates: start: 20100601, end: 20100701
  3. NEXAVAR [Suspect]
     Dosage: TOTAL DAILY DOSE: 400 MG  UNIT DOSE: 200 MG
     Route: 048
     Dates: start: 20100701
  4. VITAMINS [Concomitant]

REACTIONS (2)
  - BLISTER [None]
  - RASH [None]
